FAERS Safety Report 4401855-7 (Version None)
Quarter: 2004Q3

REPORT INFORMATION
  Report Type: 
  Country: None (occurrence: None)
  Receive Date: 20040714
  Receipt Date: 20040624
  Transmission Date: 20050211
  Serious: Yes (Hospitalization, Other)
  Sender: FDA-Public Use
  Company Number: USA040670457

PATIENT
  Age: 67 Year
  Sex: Male

DRUGS (1)
  1. HUMALOG [Suspect]
     Dates: start: 20000101

REACTIONS (6)
  - ASTHENIA [None]
  - MYOCARDIAL INFARCTION [None]
  - PHARMACEUTICAL PRODUCT COMPLAINT [None]
  - PLEURAL EFFUSION [None]
  - POST PROCEDURAL COMPLICATION [None]
  - THROMBOSIS [None]
